FAERS Safety Report 9644542 (Version 4)
Quarter: 2013Q4

REPORT INFORMATION
  Report Type: Spontaneous
  Country: RS (occurrence: RS)
  Receive Date: 20131025
  Receipt Date: 20131120
  Transmission Date: 20140711
  Serious: Yes (Death, Life-Threatening, Other)
  Sender: FDA-Public Use
  Company Number: RS-AMGEN-SRBSP2013074440

PATIENT
  Age: 62 Year
  Sex: Female

DRUGS (3)
  1. FILGRASTIM [Suspect]
     Indication: COLORECTAL CANCER
     Dosage: UNK
     Route: 042
     Dates: start: 20130627, end: 20130627
  2. FLUOROURACIL [Suspect]
     Indication: COLORECTAL CANCER
     Dosage: DAYS 1-5 Q4W (1000 MG/M2,1 IN 4 WK)
     Route: 042
     Dates: start: 20130513, end: 20130627
  3. CISPLATIN [Suspect]
     Indication: COLORECTAL CANCER
     Dosage: DAY 2 Q4W (100 MG/M2,1 IN 4 WK)
     Route: 042
     Dates: start: 20130513, end: 20130627

REACTIONS (6)
  - Haemorrhage [Fatal]
  - Vital functions abnormal [Fatal]
  - Febrile neutropenia [Not Recovered/Not Resolved]
  - Drug ineffective [Unknown]
  - Tachycardia [Not Recovered/Not Resolved]
  - Dyspnoea [Not Recovered/Not Resolved]
